FAERS Safety Report 6433703-8 (Version None)
Quarter: 2009Q4

REPORT INFORMATION
  Report Type: 
  Country: None (occurrence: None)
  Receive Date: 20091110
  Receipt Date: 20091103
  Transmission Date: 20100525
  Serious: Yes (Death, Hospitalization)
  Sender: FDA-Public Use
  Company Number: US-ROCHE-663838

PATIENT
  Sex: Male

DRUGS (2)
  1. PEG-INTERFERON A-2A (RO 25-8310) [Suspect]
     Route: 058
     Dates: start: 20090603, end: 20091005
  2. RIBAVIRIN [Suspect]
     Route: 048
     Dates: start: 20090603, end: 20091005

REACTIONS (2)
  - BACTERIAL SEPSIS [None]
  - CEREBROVASCULAR ACCIDENT [None]
